FAERS Safety Report 21942278 (Version 1)
Quarter: 2023Q1

REPORT INFORMATION
  Report Type: Report from Study
  Country: US (occurrence: US)
  Receive Date: 20230202
  Receipt Date: 20230202
  Transmission Date: 20230417
  Serious: No
  Sender: FDA-Public Use
  Company Number: US-EXELIXIS-CABO-22057273

PATIENT
  Sex: Male

DRUGS (3)
  1. CABOMETYX [Suspect]
     Active Substance: CABOZANTINIB S-MALATE
     Indication: Renal cancer
     Dosage: 40 MG, QD
     Route: 048
  2. CABOMETYX [Suspect]
     Active Substance: CABOZANTINIB S-MALATE
     Dosage: 40 MG, QD
     Route: 048
     Dates: end: 202211
  3. CABOMETYX [Suspect]
     Active Substance: CABOZANTINIB S-MALATE
     Dosage: 20 MG, QD
     Route: 048
     Dates: start: 20221208

REACTIONS (12)
  - Faeces hard [Unknown]
  - Gingival pain [Unknown]
  - Glossitis [Unknown]
  - Gingival disorder [Unknown]
  - Scrotal erythema [Recovered/Resolved]
  - Scrotal inflammation [Recovered/Resolved]
  - Glossodynia [Unknown]
  - Hair colour changes [Recovered/Resolved]
  - Pain [Unknown]
  - Blood pressure increased [Unknown]
  - Muscle spasms [Recovered/Resolved]
  - Pain in extremity [Recovered/Resolved]
